FAERS Safety Report 4615870-1 (Version None)
Quarter: 2005Q2

REPORT INFORMATION
  Report Type: 
  Country: None (occurrence: None)
  Receive Date: 20050311
  Receipt Date: 20041105
  Transmission Date: 20051028
  Serious: No
  Sender: FDA-Public Use
  Company Number: 2004-BP-11498BP

PATIENT
  Age: 75 Year
  Sex: Female

DRUGS (4)
  1. SPIRIVA [Suspect]
     Indication: CHRONIC OBSTRUCTIVE PULMONARY DISEASE
     Dosage: 18 MCG (18 MCG), IH
     Route: 055
     Dates: start: 20040817
  2. SPIRIVA [Suspect]
     Indication: SARCOIDOSIS
     Dosage: 18 MCG (18 MCG), IH
     Route: 055
     Dates: start: 20040817
  3. SPIRIVA [Suspect]
     Indication: CHRONIC OBSTRUCTIVE PULMONARY DISEASE
     Dosage: 18 MCG (18 MCG), IH
     Route: 055
     Dates: start: 20040817
  4. SPIRIVA [Suspect]
     Indication: SARCOIDOSIS
     Dosage: 18 MCG (18 MCG), IH
     Route: 055
     Dates: start: 20040817

REACTIONS (5)
  - ASTHENIA [None]
  - DRUG INEFFECTIVE [None]
  - LETHARGY [None]
  - PULMONARY CONGESTION [None]
  - SLUGGISHNESS [None]
